FAERS Safety Report 19642577 (Version 1)
Quarter: 2021Q3

REPORT INFORMATION
  Report Type: Spontaneous
  Country: CN (occurrence: CN)
  Receive Date: 20210730
  Receipt Date: 20210730
  Transmission Date: 20211014
  Serious: Yes (Hospitalization, Disabling)
  Sender: FDA-Public Use
  Company Number: CN-PFIZER INC-202100910325

PATIENT
  Age: 6 Year
  Sex: Female
  Weight: 18 kg

DRUGS (1)
  1. ZYVOX [Suspect]
     Active Substance: LINEZOLID
     Indication: PNEUMONIA
     Dosage: 0.18 G, 3X/DAY
     Route: 048
     Dates: start: 20210626, end: 20210705

REACTIONS (5)
  - Pyrexia [Recovering/Resolving]
  - Poor peripheral circulation [Recovering/Resolving]
  - Sepsis [Recovering/Resolving]
  - Pigmentation disorder [Recovering/Resolving]
  - Neutrophil count decreased [Recovering/Resolving]

NARRATIVE: CASE EVENT DATE: 20210708
